FAERS Safety Report 21812556 (Version 1)
Quarter: 2023Q1

REPORT INFORMATION
  Report Type: Report from Study
  Country: CN (occurrence: None)
  Receive Date: 20230103
  Receipt Date: 20230103
  Transmission Date: 20230417
  Serious: Yes (Other)
  Sender: FDA-Public Use
  Company Number: 2023A000893

PATIENT

DRUGS (4)
  1. DAPAGLIFLOZIN [Suspect]
     Active Substance: DAPAGLIFLOZIN
     Indication: Diabetic nephropathy
     Dosage: INITIAL DOSE WAS 5 MG, QD, IN THE MORNING WITHOUT BEING AFFECTED BY MEALS TIME. LATER, THE DOSE W...
     Route: 048
  2. DAPAGLIFLOZIN [Suspect]
     Active Substance: DAPAGLIFLOZIN
     Indication: Diabetic nephropathy
     Dosage: DOSE WAS GRADUALLY INCREASED ACCORDING TO THE DOCTOR^S ADVICE, WITH A MAXIMUM DAILY DOSE OF { 10 MG
     Route: 048
  3. IRBESARTAN [Suspect]
     Active Substance: IRBESARTAN
     Indication: Diabetic nephropathy
     Dosage: 0.15 G, QD
     Route: 065
  4. IRBESARTAN [Suspect]
     Active Substance: IRBESARTAN
     Indication: Diabetic nephropathy
     Dosage: DOSE COULD BE INCREASED TO 0.3 G, QD, ACCORDING TO THE CONTROL OF PATIENT^S DISEASE CONDITION
     Route: 065

REACTIONS (1)
  - Vasculitis [Unknown]
